FAERS Safety Report 15546926 (Version 10)
Quarter: 2020Q1

REPORT INFORMATION
  Report Type: Spontaneous
  Country: CA (occurrence: CA)
  Receive Date: 20181024
  Receipt Date: 20200203
  Transmission Date: 20200409
  Serious: Yes (Other)
  Sender: FDA-Public Use
  Company Number: CA-AMGEN-CANSP2018148179

PATIENT
  Age: 6 Year
  Sex: Female
  Weight: 28 kg

DRUGS (29)
  1. ACTEMRA [Suspect]
     Active Substance: TOCILIZUMAB
     Indication: JUVENILE IDIOPATHIC ARTHRITIS
     Dosage: 280 MILLIGRAM, QD (55 DAYS)
     Route: 065
  2. METHOTREXATE. [Suspect]
     Active Substance: METHOTREXATE
     Indication: JUVENILE IDIOPATHIC ARTHRITIS
     Dosage: 10 MILLIGRAM, QD
     Route: 065
  3. ENBREL [Suspect]
     Active Substance: ETANERCEPT
     Indication: JUVENILE IDIOPATHIC ARTHRITIS
     Dosage: 25 MILLIGRAM, QD (141.0 DAYS)
     Route: 065
  4. ANAKINRA [Suspect]
     Active Substance: ANAKINRA
     Indication: JUVENILE IDIOPATHIC ARTHRITIS
     Dosage: 200 MILLIGRAM, QD
     Route: 058
  5. ANAKINRA [Suspect]
     Active Substance: ANAKINRA
     Dosage: 150 MILLIGRAM, QD
     Route: 058
  6. ACETYLSALICYLIC ACID [Suspect]
     Active Substance: ASPIRIN
     Indication: JUVENILE IDIOPATHIC ARTHRITIS
     Dosage: 80 MILLIGRAM, QD
     Route: 065
  7. KINERET [Suspect]
     Active Substance: ANAKINRA
     Indication: JUVENILE IDIOPATHIC ARTHRITIS
     Dosage: 150 MILLIGRAM, QD (44.0 DAYS)
     Route: 065
  8. KINERET [Suspect]
     Active Substance: ANAKINRA
     Dosage: 200 MILLIGRAM, QD (15.0 DAYS)
     Route: 065
  9. METHOTREXATE. [Suspect]
     Active Substance: METHOTREXATE
     Indication: IMMUNOSUPPRESSANT DRUG THERAPY
     Dosage: 20 MILLIGRAM, QD
     Route: 065
  10. PREDNISONE. [Suspect]
     Active Substance: PREDNISONE
     Indication: STILL^S DISEASE
     Dosage: 20 MILLIGRAM, QD
     Route: 065
  11. CELECOXIB. [Suspect]
     Active Substance: CELECOXIB
     Indication: JUVENILE IDIOPATHIC ARTHRITIS
     Dosage: 100 MILLIGRAM, QD
     Route: 065
  12. METHOTREXATE. [Suspect]
     Active Substance: METHOTREXATE
     Dosage: 20 MILLIGRAM
     Route: 065
  13. TINZAPARIN [Suspect]
     Active Substance: TINZAPARIN
     Dosage: UNK UNK, QD (4400 DOSAGE FORM)
     Route: 065
  14. PREDNISONE. [Suspect]
     Active Substance: PREDNISONE
     Dosage: 4 MILLIGRAM, QD (639.0 DAYS)
     Route: 065
  15. ACTEMRA [Suspect]
     Active Substance: TOCILIZUMAB
     Indication: IMMUNOSUPPRESSANT DRUG THERAPY
     Dosage: UNK
     Route: 065
  16. IMMUNOGLOBULIN (IMMUNOGLOBULIN HUMAN NORMAL) [Suspect]
     Active Substance: HUMAN IMMUNOGLOBULIN G
     Indication: JUVENILE IDIOPATHIC ARTHRITIS
     Dosage: 20 GRAM, QD (13 DAYS)
     Route: 042
  17. METHOTREXATE. [Suspect]
     Active Substance: METHOTREXATE
     Dosage: 4 MILLIGRAM, QD
     Route: 065
  18. REMICADE [Suspect]
     Active Substance: INFLIXIMAB
     Indication: JUVENILE IDIOPATHIC ARTHRITIS
     Dosage: 100 MILLIGRAM, QD
     Route: 042
  19. HYDROCORTISON [Suspect]
     Active Substance: HYDROCORTISONE
     Indication: PRODUCT USED FOR UNKNOWN INDICATION
     Dosage: 7 MILLIGRAM, QD
     Route: 065
  20. HYDROCORTISONE. [Suspect]
     Active Substance: HYDROCORTISONE
     Indication: PRODUCT USED FOR UNKNOWN INDICATION
     Dosage: 7 MILLIGRAM, QD
     Route: 065
  21. ANAKINRA [Suspect]
     Active Substance: ANAKINRA
     Dosage: 100 MILLIGRAM, QD
     Route: 058
  22. ACETYLSALICYLIC ACID [Suspect]
     Active Substance: ASPIRIN
     Dosage: 80 MILLIGRAM, Q2WK
     Route: 065
  23. REMICADE [Suspect]
     Active Substance: INFLIXIMAB
     Dosage: 100 MILLIGRAM, QD
     Route: 065
  24. CICLOSPORIN [Suspect]
     Active Substance: CYCLOSPORINE
     Indication: JUVENILE IDIOPATHIC ARTHRITIS
     Dosage: 80 MILLIGRAM, QD (349.0 DAYS)
     Route: 065
  25. TINZAPARIN [Suspect]
     Active Substance: TINZAPARIN
     Indication: PRODUCT USED FOR UNKNOWN INDICATION
     Dosage: 4400.0 DOSAGE FORMS, QD (359 DAYS)
     Route: 065
  26. INDOMETHACIN [INDOMETACIN] [Suspect]
     Active Substance: INDOMETHACIN
     Indication: STILL^S DISEASE
     Dosage: 25 MILLIGRAM, QD
     Route: 065
  27. GAMMAGARD [Suspect]
     Active Substance: HUMAN IMMUNOGLOBULIN G
     Indication: JUVENILE IDIOPATHIC ARTHRITIS
     Dosage: 20 UNK, QD
     Route: 065
  28. KINERET [Suspect]
     Active Substance: ANAKINRA
     Dosage: 100 MILLIGRAM, QD (62.0 DAYS)
     Route: 065
  29. INFLIXIMAB [Suspect]
     Active Substance: INFLIXIMAB
     Indication: JUVENILE IDIOPATHIC ARTHRITIS
     Dosage: 100 MILLIGRAM, QD (13 DAYS)
     Route: 065

REACTIONS (4)
  - Adrenal suppression [Not Recovered/Not Resolved]
  - Psoriasis [Not Recovered/Not Resolved]
  - Product use in unapproved indication [Unknown]
  - Antinuclear antibody positive [Not Recovered/Not Resolved]
